FAERS Safety Report 19076135 (Version 3)
Quarter: 2021Q2

REPORT INFORMATION
  Report Type: Spontaneous
  Country: US (occurrence: US)
  Receive Date: 20210331
  Receipt Date: 20210607
  Transmission Date: 20210717
  Serious: Yes (Death, Hospitalization)
  Sender: FDA-Public Use
  Company Number: US-BIOGEN-2021BI00995574

PATIENT
  Age: 72 Year
  Sex: Female

DRUGS (1)
  1. TYSABRI [Suspect]
     Active Substance: NATALIZUMAB
     Indication: MULTIPLE SCLEROSIS
     Route: 065
     Dates: start: 20090112, end: 20210105

REACTIONS (3)
  - COVID-19 [Fatal]
  - Multiple sclerosis [Unknown]
  - Headache [Unknown]

NARRATIVE: CASE EVENT DATE: 202102
